FAERS Safety Report 4316708-2 (Version None)
Quarter: 2004Q1

REPORT INFORMATION
  Report Type: 
  Country: None (occurrence: None)
  Receive Date: 20040312
  Receipt Date: 20040305
  Transmission Date: 20041129
  Serious: Yes (Death)
  Sender: FDA-Public Use
  Company Number: 7555

PATIENT
  Age: 67 Year
  Sex: Male

DRUGS (4)
  1. AMIODARONE HCL [Suspect]
     Indication: ATRIAL FIBRILLATION
     Dosage: 200 MG, FREQ, PO
     Route: 048
     Dates: start: 20011108, end: 20040112
  2. AMLODIPINE [Concomitant]
  3. DOXAZOSIN MESYLATE [Concomitant]
  4. RAMIPRIL [Concomitant]

REACTIONS (1)
  - ALVEOLITIS [None]
